FAERS Safety Report 9414880 (Version 4)
Quarter: 2015Q2

REPORT INFORMATION
  Report Type: Spontaneous
  Country: US (occurrence: US)
  Receive Date: 20130723
  Receipt Date: 20150526
  Transmission Date: 20150821
  Serious: Yes (Death)
  Sender: FDA-Public Use
  Company Number: US-JNJFOC-20130709742

PATIENT
  Age: 85 Year
  Sex: Female

DRUGS (1)
  1. RISPERDAL CONSTA [Suspect]
     Active Substance: RISPERIDONE
     Indication: PRODUCT USED FOR UNKNOWN INDICATION
     Route: 030

REACTIONS (6)
  - Dementia [Unknown]
  - Paraesthesia [Not Recovered/Not Resolved]
  - Adverse event [Fatal]
  - Drug administration error [Unknown]
  - Injection site mass [Not Recovered/Not Resolved]
  - Victim of sexual abuse [Recovered/Resolved]

NARRATIVE: CASE EVENT DATE: 2013
